FAERS Safety Report 13364414 (Version 1)
Quarter: 2017Q1

REPORT INFORMATION
  Report Type: Report from Study
  Country: IE (occurrence: IE)
  Receive Date: 20170323
  Receipt Date: 20170323
  Transmission Date: 20170429
  Serious: Yes (Hospitalization)
  Sender: FDA-Public Use
  Company Number: IE-TAKEDA-2017TUS005415

PATIENT
  Age: 31 Year
  Sex: Female

DRUGS (4)
  1. VEDOLIZUMAB [Suspect]
     Active Substance: VEDOLIZUMAB
     Indication: CROHN^S DISEASE
     Dosage: UNK
     Route: 042
     Dates: start: 20160519
  2. PENTASA [Concomitant]
     Active Substance: MESALAMINE
     Dosage: 2 G, BID
  3. ESOMEPRAZOLE KRKA                  /01479301/ [Concomitant]
     Dosage: 40 MG, QD
  4. CALCICHEW D3 FORTE [Concomitant]
     Active Substance: CALCIUM\CHOLECALCIFEROL
     Dosage: UNK, BID

REACTIONS (6)
  - Pregnancy [Unknown]
  - Nephrolithiasis [Unknown]
  - Fatigue [Unknown]
  - Immunodeficiency [Unknown]
  - Malaise [Unknown]
  - Kidney infection [Unknown]
